FAERS Safety Report 5126284-2 (Version None)
Quarter: 2006Q4

REPORT INFORMATION
  Report Type: 
  Country: None (occurrence: None)
  Receive Date: 20061012
  Receipt Date: 20061005
  Transmission Date: 20070319
  Serious: Yes (Disabling)
  Sender: FDA-Public Use
  Company Number: US-MERCK-0610USA04301

PATIENT
  Age: 59 Year
  Sex: Male

DRUGS (5)
  1. ZETIA [Suspect]
     Route: 048
     Dates: start: 20060428, end: 20061003
  2. LOTREL [Concomitant]
     Route: 065
  3. PLAVIX [Concomitant]
     Route: 065
  4. ASPIRIN [Concomitant]
     Route: 065
  5. MULTI-VITAMINS [Concomitant]
     Route: 065

REACTIONS (5)
  - ABDOMINAL PAIN [None]
  - DYSPNOEA [None]
  - FATIGUE [None]
  - MUSCULAR WEAKNESS [None]
  - SINUSITIS [None]
